FAERS Safety Report 5633385-9 (Version None)
Quarter: 2008Q1

REPORT INFORMATION
  Report Type: 
  Country: None (occurrence: None)
  Receive Date: 20080221
  Receipt Date: 20080212
  Transmission Date: 20080703
  Serious: Yes (Other)
  Sender: FDA-Public Use
  Company Number: JP-ASTRAZENECA-2008AP01118

PATIENT
  Age: 82 Year

DRUGS (1)
  1. SEROQUEL [Suspect]
     Route: 048
     Dates: start: 20060705

REACTIONS (1)
  - MUSCULOSKELETAL STIFFNESS [None]
